FAERS Safety Report 18959044 (Version 1)
Quarter: 2021Q1

REPORT INFORMATION
  Report Type: Spontaneous
  Country: US (occurrence: US)
  Receive Date: 20210302
  Receipt Date: 20210302
  Transmission Date: 20210420
  Serious: No
  Sender: FDA-Public Use
  Company Number: US-BAYER-2021-090998

PATIENT
  Age: 67 Year
  Sex: Female
  Weight: 59 kg

DRUGS (2)
  1. VITAMINS NOS [Concomitant]
     Active Substance: VITAMINS
     Dosage: UNK
  2. CLARITIN [Suspect]
     Active Substance: LORATADINE
     Indication: GASTRITIS
     Dosage: 10 ML, QD
     Route: 048
     Dates: start: 20201031, end: 20201114

REACTIONS (8)
  - Eczema [None]
  - Swelling of eyelid [Unknown]
  - Product use in unapproved indication [Unknown]
  - Inflammation [Unknown]
  - Eye disorder [Unknown]
  - Off label use [Unknown]
  - Pruritus [Unknown]
  - Blepharitis [Unknown]

NARRATIVE: CASE EVENT DATE: 20201031
